FAERS Safety Report 6704499-7 (Version None)
Quarter: 2010Q2

REPORT INFORMATION
  Report Type: 
  Country: None (occurrence: None)
  Receive Date: 20100430
  Receipt Date: 20100419
  Transmission Date: 20101027
  Serious: Yes (Other)
  Sender: FDA-Public Use
  Company Number: PHEH2010US03299

PATIENT
  Sex: Female

DRUGS (5)
  1. DIOVAN [Suspect]
     Indication: HYPERTENSION
     Dosage: 40 MG, ONCE A DAY
     Route: 048
     Dates: start: 20100203, end: 20100316
  2. ESTRADIOL [Concomitant]
  3. ASPIRIN [Concomitant]
     Dosage: 325 MG, UNK
  4. METOPROLOL - SLOW RELEASE [Concomitant]
     Dosage: 12.5 MG, BID
     Dates: start: 20090320
  5. METOPROLOL - SLOW RELEASE [Concomitant]
     Dosage: 25 MG, BID
     Dates: start: 20100101

REACTIONS (3)
  - DRY MOUTH [None]
  - HEART RATE INCREASED [None]
  - HYPERTENSION [None]
